FAERS Safety Report 5673011-6 (Version None)
Quarter: 2008Q1

REPORT INFORMATION
  Report Type: 
  Country: None (occurrence: None)
  Receive Date: 20080319
  Receipt Date: 20080317
  Transmission Date: 20080703
  Serious: Yes (Hospitalization)
  Sender: FDA-Public Use
  Company Number: B0513033A

PATIENT
  Age: 67 Year
  Sex: Female

DRUGS (5)
  1. SAWACILLIN [Suspect]
     Route: 048
     Dates: start: 20080116, end: 20080121
  2. KLARICID [Suspect]
     Route: 048
     Dates: start: 20080116, end: 20080121
  3. TAKEPRON [Suspect]
     Route: 048
     Dates: start: 20080116, end: 20080121
  4. DEPAS [Suspect]
     Indication: DRUG USE FOR UNKNOWN INDICATION
     Route: 048
  5. GASTER D [Suspect]
     Indication: DUODENAL ULCER
     Route: 048

REACTIONS (3)
  - DRUG ERUPTION [None]
  - ECZEMA [None]
  - PRURITUS [None]
